FAERS Safety Report 6888399-8 (Version None)
Quarter: 2010Q3

REPORT INFORMATION
  Report Type: 
  Country: None (occurrence: None)
  Receive Date: 20100730
  Receipt Date: 20100721
  Transmission Date: 20110219
  Serious: Yes (Other)
  Sender: FDA-Public Use
  Company Number: US-ABBOTT-10P-163-0659470-00

PATIENT
  Sex: Female
  Weight: 72.64 kg

DRUGS (6)
  1. HUMIRA [Suspect]
     Indication: RHEUMATOID ARTHRITIS
     Dates: start: 20080101, end: 20100401
  2. HUMIRA [Suspect]
     Dates: start: 20100401
  3. LEFLUNOMIDE [Concomitant]
     Indication: RHEUMATOID ARTHRITIS
  4. ETODOLAC [Concomitant]
     Indication: RHEUMATOID ARTHRITIS
  5. METOPROLOL TARTRATE [Concomitant]
     Indication: HYPERTENSION
  6. LORAZEPAM [Concomitant]
     Indication: ANXIETY

REACTIONS (7)
  - ARTHRALGIA [None]
  - ARTHRITIS [None]
  - EXOSTOSIS [None]
  - JOINT SWELLING [None]
  - JOINT WARMTH [None]
  - MOBILITY DECREASED [None]
  - OSTEOARTHRITIS [None]
